FAERS Safety Report 8489413-9 (Version None)
Quarter: 2012Q3

REPORT INFORMATION
  Report Type: 
  Country: None (occurrence: None)
  Receive Date: 20120705
  Receipt Date: 20120626
  Transmission Date: 20120928
  Serious: Yes (Hospitalization)
  Sender: FDA-Public Use
  Company Number: FR-BRISTOL-MYERS SQUIBB COMPANY-16712606

PATIENT
  Age: 6 Decade
  Sex: Male

DRUGS (1)
  1. REYATAZ [Suspect]

REACTIONS (2)
  - SALIVARY GLAND CALCULUS [None]
  - OSTEITIS [None]
